FAERS Safety Report 15341436 (Version 2)
Quarter: 2018Q4

REPORT INFORMATION
  Report Type: Spontaneous
  Country: FR (occurrence: FR)
  Receive Date: 20180901
  Receipt Date: 20180904
  Transmission Date: 20190204
  Serious: Yes (Hospitalization)
  Sender: FDA-Public Use
  Company Number: FR-SUN PHARMACEUTICAL INDUSTRIES LTD-2018R1-182995

PATIENT
  Age: 80 Year
  Sex: Female

DRUGS (10)
  1. IZALGI 500 MG/25 MG, GELULE [Suspect]
     Active Substance: ACETAMINOPHEN\OPIUM
     Indication: ANALGESIC INTERVENTION SUPPORTIVE THERAPY
     Dosage: NON PRECISEE
     Route: 048
     Dates: start: 20180628, end: 201807
  2. PYOSTACINE 500 MG, COMPRIME PELLICULE SECABLE [Suspect]
     Active Substance: PRISTINAMYCIN
     Indication: TOOTH ABSCESS
     Dosage: 2 G, DAILY
     Route: 048
     Dates: start: 20180421, end: 20180426
  3. FUCIDINE 250 MG, COMPRIME PELLICULE [Suspect]
     Active Substance: FUSIDATE SODIUM
     Indication: SKIN INFECTION
     Dosage: 1000 MG, DAILY
     Route: 048
     Dates: start: 20180629
  4. OMEPRAZOLE. [Suspect]
     Active Substance: OMEPRAZOLE
     Indication: PROPHYLAXIS AGAINST GASTROINTESTINAL ULCER
     Dosage: 20 MG, DAILY
     Route: 048
     Dates: start: 20180421, end: 20180426
  5. AERIUS (DESLORATADINE) [Suspect]
     Active Substance: DESLORATADINE
     Indication: RASH PRURITIC
     Dosage: 5 MG, DAILY
     Route: 048
     Dates: start: 20180529, end: 201806
  6. ARCOXIA [Suspect]
     Active Substance: ETORICOXIB
     Indication: OSTEOARTHRITIS
     Dosage: 60 MG, DAILY
     Route: 048
     Dates: start: 20180421, end: 20180426
  7. TETANUS TOXOID ADSORBED (VACCINE) [Suspect]
     Active Substance: CLOSTRIDIUM TETANI TOXOID ANTIGEN (FORMALDEHYDE INACTIVATED)
     Indication: IMMUNISATION
     Dosage: IN TOTAL
     Route: 065
     Dates: start: 20180629, end: 20180629
  8. DOLITABS 500 MG, COMPRIME ORODISPERSIBLE [Suspect]
     Active Substance: ACETAMINOPHEN
     Indication: ANALGESIC INTERVENTION SUPPORTIVE THERAPY
     Dosage: NON PRECISEE
     Route: 048
     Dates: start: 20180627, end: 20180627
  9. DOLIPRANE [Suspect]
     Active Substance: ACETAMINOPHEN
     Indication: ANALGESIC INTERVENTION SUPPORTIVE THERAPY
     Dosage: NON PRECISEE
     Route: 048
     Dates: start: 20180628, end: 201807
  10. BILASKA 20 MG, COMPRIME [Suspect]
     Active Substance: BILASTINE
     Indication: RASH PRURITIC
     Dosage: 20 MG, DAILY
     Route: 048
     Dates: start: 20180615

REACTIONS (1)
  - Drug reaction with eosinophilia and systemic symptoms [Recovering/Resolving]

NARRATIVE: CASE EVENT DATE: 201805
